FAERS Safety Report 5955937-9 (Version None)
Quarter: 2008Q4

REPORT INFORMATION
  Report Type: 
  Country: None (occurrence: None)
  Receive Date: 20081117
  Receipt Date: 20081106
  Transmission Date: 20090506
  Serious: Yes (Hospitalization)
  Sender: FDA-Public Use
  Company Number: IT-ABBOTT-08P-083-0487034-00

PATIENT
  Age: 46 Year
  Sex: Female

DRUGS (9)
  1. RITONAVIR SOFT GELATIN CAPSULES [Suspect]
     Indication: HIV INFECTION
     Route: 048
  2. RITONAVIR SOFT GELATIN CAPSULES [Suspect]
     Indication: HEPATITIS C VIRUS TEST
  3. RITONAVIR SOFT GELATIN CAPSULES [Suspect]
     Indication: HEPATIC CIRRHOSIS
  4. ATAZANAVIR SULFATE [Suspect]
     Indication: HIV INFECTION
     Route: 048
  5. ATAZANAVIR SULFATE [Suspect]
     Indication: HEPATITIS C VIRUS TEST
  6. ATAZANAVIR SULFATE [Suspect]
     Indication: HEPATIC CIRRHOSIS
  7. TRUVADA [Suspect]
     Indication: HIV INFECTION
     Route: 048
  8. TRUVADA [Suspect]
     Indication: HEPATITIS C VIRUS TEST
  9. TRUVADA [Suspect]
     Indication: HEPATIC CIRRHOSIS

REACTIONS (3)
  - FAT REDISTRIBUTION [None]
  - HYPERGLYCAEMIA [None]
  - WEIGHT INCREASED [None]
